FAERS Safety Report 25320578 (Version 1)
Quarter: 2025Q2

REPORT INFORMATION
  Report Type: Spontaneous
  Country: US (occurrence: None)
  Receive Date: 20250515
  Receipt Date: 20250515
  Transmission Date: 20250717
  Serious: No
  Sender: INCYTE
  Company Number: US-INCYTE CORPORATION-2025IN004901

PATIENT
  Age: 57 Year

DRUGS (2)
  1. PEMAZYRE [Suspect]
     Active Substance: PEMIGATINIB
     Route: 065
  2. PEMAZYRE [Suspect]
     Active Substance: PEMIGATINIB

REACTIONS (1)
  - Product use complaint [Unknown]
